FAERS Safety Report 22527352 (Version 2)
Quarter: 2023Q2

REPORT INFORMATION
  Report Type: Spontaneous
  Country: US (occurrence: US)
  Receive Date: 20230606
  Receipt Date: 20230607
  Transmission Date: 20230722
  Serious: No
  Sender: FDA-Public Use
  Company Number: US-002147023-NVSC2023US126549

PATIENT
  Sex: Male

DRUGS (1)
  1. BRIMONIDINE TARTRATE\TIMOLOL MALEATE [Suspect]
     Active Substance: BRIMONIDINE TARTRATE\TIMOLOL MALEATE
     Indication: Product used for unknown indication
     Dosage: UNK, BID (MORNING AND NIGHT)
     Route: 047

REACTIONS (4)
  - Ocular discomfort [Unknown]
  - Eye allergy [Unknown]
  - Eyelids pruritus [Unknown]
  - Eyelid irritation [Unknown]
